FAERS Safety Report 13939929 (Version 1)
Quarter: 2017Q3

REPORT INFORMATION
  Report Type: Spontaneous
  Country: US (occurrence: US)
  Receive Date: 20170906
  Receipt Date: 20170906
  Transmission Date: 20171127
  Serious: Yes (Other)
  Sender: FDA-Public Use
  Company Number: US-NOVOPROD-561398

PATIENT
  Age: 59 Year
  Sex: Female
  Weight: 100.23 kg

DRUGS (1)
  1. TRESIBA FLEXTOUCH U200 [Suspect]
     Active Substance: INSULIN DEGLUDEC
     Indication: TYPE 2 DIABETES MELLITUS
     Route: 058
     Dates: start: 20170821, end: 20170824

REACTIONS (3)
  - Lyme disease [Unknown]
  - Injection site hypersensitivity [Unknown]
  - Blood glucose increased [Not Recovered/Not Resolved]

NARRATIVE: CASE EVENT DATE: 201708
